FAERS Safety Report 13153633 (Version 1)
Quarter: 2017Q1

REPORT INFORMATION
  Report Type: Spontaneous
  Country: US (occurrence: US)
  Receive Date: 20170124
  Receipt Date: 20170124
  Transmission Date: 20170428
  Serious: No
  Sender: FDA-Public Use
  Company Number: None

PATIENT
  Age: 63 Year
  Sex: Male
  Weight: 107.14 kg

DRUGS (1)
  1. CAPECITABINE 500 MG MYLAN / TAB [Suspect]
     Active Substance: CAPECITABINE
     Indication: COLON CANCER
     Dosage: 1500 MG BID FOR 14 DAYS EVERY 21 DAYS PO
     Route: 048
     Dates: start: 20161114

REACTIONS (1)
  - Skin discolouration [None]
